FAERS Safety Report 6673695-X (Version None)
Quarter: 2010Q1

REPORT INFORMATION
  Report Type: 
  Country: None (occurrence: None)
  Receive Date: 20100329
  Receipt Date: 20090819
  Transmission Date: 20100710
  Serious: Yes (Other)
  Sender: FDA-Public Use
  Company Number: 2009236602

PATIENT
  Age: 49 Year
  Sex: Female

DRUGS (2)
  1. GEODON [Suspect]
     Dates: start: 20090601
  2. TRAZODONE HCL [Concomitant]

REACTIONS (5)
  - BURNING SENSATION [None]
  - HYPERSENSITIVITY [None]
  - LIP SWELLING [None]
  - SPEECH DISORDER [None]
  - SWOLLEN TONGUE [None]
